FAERS Safety Report 8065156-0 (Version None)
Quarter: 2012Q1

REPORT INFORMATION
  Report Type: 
  Country: None (occurrence: None)
  Receive Date: 20120117
  Receipt Date: 20120110
  Transmission Date: 20120608
  Serious: Yes (Death)
  Sender: FDA-Public Use
  Company Number: 1000026992

PATIENT
  Age: 74 Year
  Sex: Female

DRUGS (10)
  1. RISPERIDONE [Suspect]
  2. LEVOTHROID [Suspect]
  3. SIMVASTATIN [Suspect]
  4. TEMAZEPAM [Suspect]
  5. BUMETANIDE [Suspect]
  6. HYPOCHOLORITE (SODIUM HYPOCHLORITE) [Suspect]
  7. POTASSIUM CHLORIDE [Suspect]
  8. CARVEDILOL [Suspect]
  9. CLOPIDOGREL [Suspect]
  10. LISINOPRIL [Suspect]

REACTIONS (3)
  - RESPIRATORY ARREST [None]
  - COMPLETED SUICIDE [None]
  - CARDIAC ARREST [None]
